FAERS Safety Report 4545118-8 (Version None)
Quarter: 2004Q4

REPORT INFORMATION
  Report Type: 
  Country: None (occurrence: None)
  Receive Date: 20041222
  Receipt Date: 20040525
  Transmission Date: 20050328
  Serious: Yes (Hospitalization, Other)
  Sender: FDA-Public Use
  Company Number: US_010668335

PATIENT
  Age: 79 Year
  Sex: Female
  Weight: 64 kg

DRUGS (6)
  1. HUMALOG [Suspect]
     Dates: start: 20000101, end: 20020101
  2. HUMULIN 70/30 [Suspect]
     Indication: DIABETES MELLITUS
     Dosage: 62 U/DAY
     Dates: start: 20010614
  3. HUMULIN R [Suspect]
     Dates: start: 20040326
  4. NITRO PATCH (GLYCERYL TRINITRATE) [Concomitant]
  5. NITROTAB (GLYCERYL TRINITRATE) [Concomitant]
  6. GLUCOPHAGE [Concomitant]

REACTIONS (3)
  - BLOOD GLUCOSE DECREASED [None]
  - LOSS OF CONSCIOUSNESS [None]
  - STENT PLACEMENT [None]
